FAERS Safety Report 16433939 (Version 2)
Quarter: 2019Q3

REPORT INFORMATION
  Report Type: Spontaneous
  Country: MA (occurrence: MA)
  Receive Date: 20190614
  Receipt Date: 20190710
  Transmission Date: 20191004
  Serious: Yes (Life-Threatening, Other)
  Sender: FDA-Public Use
  Company Number: MA-009507513-1906MAR005139

PATIENT
  Sex: Female
  Weight: 75 kg

DRUGS (1)
  1. JANUVIA [Suspect]
     Active Substance: SITAGLIPTIN PHOSPHATE
     Indication: TYPE 2 DIABETES MELLITUS
     Dosage: 2 DOSAGE FORM, QD

REACTIONS (4)
  - Tachycardia [Recovered/Resolved]
  - Discomfort [Recovered/Resolved]
  - Altered state of consciousness [Recovered/Resolved]
  - Dyspnoea [Recovered/Resolved]
